FAERS Safety Report 9520406 (Version 2)
Quarter: 2013Q3

REPORT INFORMATION
  Report Type: Spontaneous
  Country: US (occurrence: US)
  Receive Date: 20130912
  Receipt Date: 20130912
  Transmission Date: 20140515
  Serious: No
  Sender: FDA-Public Use
  Company Number: US-B.I. PHARMACEUTICALS,INC./RIDGEFIELD-2012-BP-15569BP

PATIENT
  Age: 79 Year
  Sex: Female

DRUGS (5)
  1. COMBIVENT [Suspect]
     Indication: CHRONIC OBSTRUCTIVE PULMONARY DISEASE
     Dosage: 8 PUF
     Route: 055
     Dates: start: 2009
  2. COMBIVENT [Suspect]
     Indication: EMPHYSEMA
  3. MEDICATION NOT FURTHER SPECIFIED [Concomitant]
     Indication: BLOOD PRESSURE
  4. MEDICATION NOT FURTHER SPECIFIED [Concomitant]
     Indication: BLOOD CHOLESTEROL INCREASED
  5. MEDICATION NOT FURTHER SPECIFIED [Concomitant]
     Indication: COAGULOPATHY

REACTIONS (2)
  - Dyspnoea [Not Recovered/Not Resolved]
  - Dyspnoea [Not Recovered/Not Resolved]
